FAERS Safety Report 8833252 (Version 3)
Quarter: 2013Q2

REPORT INFORMATION
  Report Type: Report from Study
  Country: CA (occurrence: CA)
  Receive Date: 20121010
  Receipt Date: 20130417
  Transmission Date: 20140414
  Serious: Yes (Hospitalization)
  Sender: FDA-Public Use
  Company Number: PHHY2012CA068879

PATIENT
  Age: 73 Year
  Sex: Male

DRUGS (1)
  1. SANDOSTATIN LAR [Suspect]
     Indication: NEUROENDOCRINE TUMOUR
     Dosage: 30 MG, EVERY 4 WEEKS
     Route: 030
     Dates: start: 20120125

REACTIONS (7)
  - Pyrexia [Recovered/Resolved]
  - Abdominal pain upper [Unknown]
  - Hypertension [Unknown]
  - Infection [Unknown]
  - Yellow skin [Unknown]
  - Weight decreased [Unknown]
  - Asthenia [Unknown]
